FAERS Safety Report 4345977-8 (Version None)
Quarter: 2004Q2

REPORT INFORMATION
  Report Type: 
  Country: None (occurrence: None)
  Receive Date: 20040420
  Receipt Date: 20040413
  Transmission Date: 20050107
  Serious: Yes (Hospitalization, Other)
  Sender: FDA-Public Use
  Company Number: HQWYE441613APR04

PATIENT
  Age: 74 Year
  Sex: Female

DRUGS (16)
  1. CORDARONE [Suspect]
     Dosage: 200 MG 4X PER 1 WK
     Route: 048
     Dates: start: 20020917
  2. LEVOTHYROXINE SODIUM [Suspect]
     Dosage: 100 UG 1X PER 1 DAY
     Route: 048
     Dates: start: 20020917
  3. PREVISCAN (FLUNIDIONE) [Suspect]
     Dosage: SEE IMAGE
     Route: 048
     Dates: start: 20021207, end: 20021215
  4. PREVISCAN (FLUNIDIONE) [Suspect]
     Dosage: SEE IMAGE
     Route: 048
     Dates: start: 20021216, end: 20021216
  5. RULID (ROXITHROMYCIN) [Suspect]
     Dosage: 300 MG 1X PER 1 DAY
     Route: 048
     Dates: start: 20021213, end: 20021216
  6. TAHOR (ATORVASTATIN) [Suspect]
     Dosage: 2 DF DAILY
     Route: 048
     Dates: start: 20020917
  7. VOLTAREN [Suspect]
     Dosage: 100 MG 1X PER 1 DAY
     Route: 048
     Dates: start: 20021130, end: 20021216
  8. FLUCONAZOLE [Concomitant]
  9. ULTRA-LEVURE (SACCHAROMYCES BOULARDII) [Concomitant]
  10. KAYEXALATE [Concomitant]
  11. TRAMADOL HCL [Concomitant]
  12. LASIX [Concomitant]
  13. AMITRIPTYLINE HYDROCHLORIDE [Concomitant]
  14. OMEPRAZOLE [Concomitant]
  15. NOCTAMID-1 (LORMETAZEPAM) [Concomitant]
  16. RAMIPRIL [Concomitant]

REACTIONS (8)
  - ARTERIOVENOUS FISTULA SITE HAEMORRHAGE [None]
  - BLOOD FIBRINOGEN DECREASED [None]
  - COAGULATION FACTOR X LEVEL DECREASED [None]
  - DRUG INTERACTION [None]
  - HAEMATOCRIT DECREASED [None]
  - HAEMOGLOBIN DECREASED [None]
  - INTERNATIONAL NORMALISED RATIO INCREASED [None]
  - PROTHROMBIN TIME PROLONGED [None]
